FAERS Safety Report 7515692-8 (Version None)
Quarter: 2011Q2

REPORT INFORMATION
  Report Type: 
  Country: None (occurrence: None)
  Receive Date: 20110601
  Receipt Date: 20110525
  Transmission Date: 20111010
  Serious: Yes (Hospitalization, Other)
  Sender: FDA-Public Use
  Company Number: CA-AMGEN-CANSP2011027349

PATIENT
  Age: 67 Year
  Sex: Male

DRUGS (5)
  1. NEULASTA [Suspect]
     Indication: PRODUCT USED FOR UNKNOWN INDICATION
     Dosage: UNK UNK, Q2WK
     Route: 058
  2. SYNTHROID [Concomitant]
     Dosage: UNK UNK, Q2WK
     Route: 048
  3. DEXAMETHASONE [Concomitant]
     Route: 048
  4. ONDANSETRON [Concomitant]
     Route: 048
  5. BISOPROLOL [Concomitant]
     Route: 048

REACTIONS (4)
  - ASTHENIA [None]
  - DIZZINESS [None]
  - NAUSEA [None]
  - BLOOD PRESSURE DECREASED [None]
